FAERS Safety Report 4817864-X (Version None)
Quarter: 2005Q3

REPORT INFORMATION
  Report Type: 
  Country: None (occurrence: None)
  Receive Date: 20050929
  Receipt Date: 20050627
  Transmission Date: 20060218
  Serious: No
  Sender: FDA-Public Use
  Company Number: 05P-163-0304164-00

PATIENT
  Age: 57 Year
  Sex: Female
  Weight: 72.1219 kg

DRUGS (3)
  1. HUMIRA [Suspect]
     Indication: RHEUMATOID ARTHRITIS
     Dosage: 40 MG, 1 IN 2 WK, SUBCUTANEOUS
     Route: 058
     Dates: start: 20050301
  2. PREDNISONE [Concomitant]
  3. ULTRACET [Concomitant]

REACTIONS (4)
  - DRUG EFFECT DECREASED [None]
  - INJECTION SITE NODULE [None]
  - INJECTION SITE SWELLING [None]
  - INJECTION SITE WARMTH [None]
